FAERS Safety Report 7171343-6 (Version None)
Quarter: 2010Q4

REPORT INFORMATION
  Report Type: 
  Country: None (occurrence: None)
  Receive Date: 20101217
  Receipt Date: 20101207
  Transmission Date: 20110411
  Serious: Yes (Other)
  Sender: FDA-Public Use
  Company Number: PHHY2010JP83763

PATIENT

DRUGS (1)
  1. RASILEZ [Suspect]
     Indication: HYPERTENSION
     Route: 048

REACTIONS (2)
  - BLOOD POTASSIUM INCREASED [None]
  - RENAL FAILURE [None]
